FAERS Safety Report 5994093-8 (Version None)
Quarter: 2008Q4

REPORT INFORMATION
  Report Type: 
  Country: None (occurrence: None)
  Receive Date: 20081212
  Receipt Date: 20081202
  Transmission Date: 20090506
  Serious: Yes (Death, Hospitalization)
  Sender: FDA-Public Use
  Company Number: NL-JNJFOC-20080103730

PATIENT
  Sex: Female

DRUGS (6)
  1. REMICADE [Suspect]
     Indication: CROHN'S DISEASE
     Dosage: 29 INFUSIONS
     Route: 042
  2. ENTOCORT EC [Concomitant]
  3. IMURAN [Concomitant]
     Dosage: FIRST 3 INFUSIONS WERE NOT GIVEN (FROM 13DEC2001 - ^27MAR2001^)
  4. SELOKEEN [Concomitant]
  5. ORGAMETRIL [Concomitant]
  6. 5-AMINOSALICYLIC ACID [Concomitant]

REACTIONS (4)
  - ABSCESS [None]
  - CARCINOID TUMOUR [None]
  - LYMPHANGIOSIS CARCINOMATOSA [None]
  - SIGNET-RING CELL CARCINOMA [None]
